FAERS Safety Report 15276758 (Version 3)
Quarter: 2018Q3

REPORT INFORMATION
  Report Type: Report from Study
  Country: US (occurrence: US)
  Receive Date: 20180814
  Receipt Date: 20180912
  Transmission Date: 20181010
  Serious: Yes (Death, Other)
  Sender: FDA-Public Use
  Company Number: PHEH2018US033645

PATIENT
  Sex: Female
  Weight: 184 kg

DRUGS (1)
  1. ENTRESTO [Suspect]
     Active Substance: SACUBITRIL\VALSARTAN
     Indication: PRODUCT USED FOR UNKNOWN INDICATION
     Dosage: 1 DF (24MG SACUBITRIL AND 26MG VALSARTAN), UNK
     Route: 048
     Dates: start: 20170729

REACTIONS (21)
  - Deep vein thrombosis [Unknown]
  - Chest pain [Unknown]
  - Bronchial wall thickening [Unknown]
  - Angina pectoris [Unknown]
  - Leukocytosis [Unknown]
  - Cardiac failure congestive [Unknown]
  - Thrombophlebitis [Unknown]
  - Pyrexia [Unknown]
  - Type 1 diabetes mellitus [Unknown]
  - Dyspnoea [Unknown]
  - Soft tissue disorder [Unknown]
  - Interstitial lung disease [Unknown]
  - Cardiomegaly [Unknown]
  - Cardio-respiratory arrest [Fatal]
  - Pulmonary oedema [Unknown]
  - Pneumonia [Unknown]
  - Palpitations [Unknown]
  - Pleural effusion [Unknown]
  - Pulmonary congestion [Unknown]
  - Coronary artery disease [Unknown]
  - Lung infiltration [Unknown]
